FAERS Safety Report 23722639 (Version 2)
Quarter: 2024Q2

REPORT INFORMATION
  Report Type: Spontaneous
  Country: TW (occurrence: TW)
  Receive Date: 20240409
  Receipt Date: 20240418
  Transmission Date: 20240716
  Serious: Yes (Other)
  Sender: FDA-Public Use
  Company Number: TW-PFIZER INC-PV202400044050

PATIENT
  Sex: Male

DRUGS (1)
  1. ENBREL [Suspect]
     Active Substance: ETANERCEPT
     Indication: Ankylosing spondylitis
     Dosage: 50 MG Q10D
     Route: 058
     Dates: start: 20231103

REACTIONS (2)
  - Off label use [Unknown]
  - Iritis [Unknown]

NARRATIVE: CASE EVENT DATE: 20231103
